FAERS Safety Report 6197333-8 (Version None)
Quarter: 2009Q2

REPORT INFORMATION
  Report Type: 
  Country: None (occurrence: None)
  Receive Date: 20090521
  Receipt Date: 20090310
  Transmission Date: 20091009
  Serious: No
  Sender: FDA-Public Use
  Company Number: US-BAYER-200915803NA

PATIENT
  Age: 48 Year
  Sex: Female
  Weight: 84 kg

DRUGS (3)
  1. AVELOX [Suspect]
     Indication: BRONCHITIS
     Dates: start: 20081218, end: 20081227
  2. SYNTHROID [Suspect]
     Indication: HYPOTHYROIDISM
     Dosage: AS USED: 50 ?G
     Route: 048
     Dates: start: 20081024, end: 20081212
  3. SYNTHROID [Suspect]
     Dosage: AS USED: 50 ?G
     Route: 048
     Dates: start: 20081228

REACTIONS (3)
  - COUGH [None]
  - FATIGUE [None]
  - HYPERSOMNIA [None]
